FAERS Safety Report 16117202 (Version 1)
Quarter: 2019Q2

REPORT INFORMATION
  Report Type: Spontaneous
  Country: US (occurrence: US)
  Receive Date: 20190325
  Receipt Date: 20190325
  Transmission Date: 20190711
  Serious: Yes (Hospitalization)
  Sender: FDA-Public Use
  Company Number: None

PATIENT
  Age: 64 Year
  Sex: Female
  Weight: 60.2 kg

DRUGS (1)
  1. DAPTOMYCIN. [Suspect]
     Active Substance: DAPTOMYCIN
     Indication: MEDICAL DEVICE SITE JOINT INFECTION
     Route: 042
     Dates: start: 20190214, end: 20190227

REACTIONS (5)
  - Pleuritic pain [None]
  - Pyrexia [None]
  - Cough [None]
  - Eosinophilic pneumonia [None]
  - Drug hypersensitivity [None]

NARRATIVE: CASE EVENT DATE: 20190227
